FAERS Safety Report 4375748-8 (Version None)
Quarter: 2004Q2

REPORT INFORMATION
  Report Type: 
  Country: None (occurrence: None)
  Receive Date: 20040610
  Receipt Date: 20040601
  Transmission Date: 20050107
  Serious: Yes (Hospitalization)
  Sender: FDA-Public Use
  Company Number: JP-BRISTOL-MYERS SQUIBB COMPANY-12604906

PATIENT
  Age: 39 Year
  Sex: Male

DRUGS (4)
  1. ZERIT [Suspect]
     Indication: HIV INFECTION
     Dosage: INTERRUPTED ON 10-DEC-1999, REINTRODUCED JAN-2000
     Route: 048
     Dates: start: 19990429
  2. EPIVIR [Suspect]
     Indication: HIV INFECTION
     Dosage: INTERRUPTED ON 10-DEC-1999, RESTARTED IN JAN-2000
     Route: 048
     Dates: start: 19990429
  3. CRIXIVAN [Suspect]
     Indication: HIV INFECTION
     Dosage: INTERRUPTED ON 10-DEC-1999, RESTARTED IN JAN-2000
     Route: 048
     Dates: start: 19990429
  4. BAKTAR [Suspect]
     Indication: INFECTION PROPHYLAXIS
     Dosage: ^1,920 MG^
     Route: 048
     Dates: start: 19990429

REACTIONS (2)
  - IMMUNE RECONSTITUTION SYNDROME [None]
  - PNEUMOCYSTIS CARINII PNEUMONIA [None]
